FAERS Safety Report 9410904 (Version 1)
Quarter: 2013Q3

REPORT INFORMATION
  Report Type: Spontaneous
  Country: PT (occurrence: PT)
  Receive Date: 20130719
  Receipt Date: 20130719
  Transmission Date: 20140515
  Serious: Yes (Other)
  Sender: FDA-Public Use
  Company Number: PT-ABBOTT-13P-130-1117760-00

PATIENT
  Age: 23 Year
  Sex: Female

DRUGS (3)
  1. HUMIRA [Suspect]
     Indication: CROHN^S DISEASE
  2. HUMIRA [Suspect]
     Route: 058
  3. AZATHIOPRINE [Concomitant]
     Indication: CROHN^S DISEASE

REACTIONS (5)
  - Skin exfoliation [Recovering/Resolving]
  - Hyperkeratosis [Recovering/Resolving]
  - Skin lesion [Recovering/Resolving]
  - Dermatitis psoriasiform [Recovering/Resolving]
  - Alopecia [Recovering/Resolving]
